FAERS Safety Report 8129801-3 (Version None)
Quarter: 2012Q1

REPORT INFORMATION
  Report Type: 
  Country: None (occurrence: None)
  Receive Date: 20120210
  Receipt Date: 20120210
  Transmission Date: 20120608
  Serious: Yes (Life-Threatening, Hospitalization)
  Sender: FDA-Public Use
  Company Number: None

PATIENT
  Age: 38 Year
  Sex: Male
  Weight: 88.45 kg

DRUGS (1)
  1. CLOZAPINE [Suspect]
     Indication: MENTAL DISORDER
     Dates: start: 20091101, end: 20110725

REACTIONS (3)
  - SMALL INTESTINAL OBSTRUCTION [None]
  - CONSTIPATION [None]
  - VOLVULUS OF SMALL BOWEL [None]
